FAERS Safety Report 9088027 (Version 1)
Quarter: 2013Q1

REPORT INFORMATION
  Report Type: Report from Study
  Country: US (occurrence: US)
  Receive Date: 20130130
  Receipt Date: 20130130
  Transmission Date: 20140127
  Serious: No
  Sender: FDA-Public Use
  Company Number: US-ABBOTT-12P-163-0953376-00

PATIENT
  Age: 28 Year
  Sex: Male

DRUGS (5)
  1. HUMIRA 40 MG/ 0.8 ML PRE-FILLED SYRINGE [Suspect]
     Indication: CROHN^S DISEASE
     Dates: start: 20120519
  2. ENTOCORT [Suspect]
     Indication: PRODUCT USED FOR UNKNOWN INDICATION
     Dosage: DAILY, TAPER REGIMEN
     Dates: start: 20120625
  3. COLAZAL [Concomitant]
     Indication: CROHN^S DISEASE
     Dosage: DAILY
  4. CLARITIN [Concomitant]
     Indication: SEASONAL ALLERGY
  5. TYLENOL [Concomitant]
     Indication: HEADACHE

REACTIONS (7)
  - Acne [Not Recovered/Not Resolved]
  - Acne [Not Recovered/Not Resolved]
  - Pruritus [Not Recovered/Not Resolved]
  - Acne [Not Recovered/Not Resolved]
  - Pruritus [Not Recovered/Not Resolved]
  - Rash maculo-papular [Not Recovered/Not Resolved]
  - Milia [Not Recovered/Not Resolved]
